FAERS Safety Report 23201553 (Version 2)
Quarter: 2024Q3

REPORT INFORMATION
  Report Type: Report from Study
  Country: US (occurrence: US)
  Receive Date: 20231118
  Receipt Date: 20240806
  Transmission Date: 20241017
  Serious: Yes (Other)
  Sender: ALEXION PHARMACEUTICALS
  Company Number: US-ALXN-202311USA000763US

PATIENT

DRUGS (1)
  1. STRENSIQ [Suspect]
     Active Substance: ASFOTASE ALFA
     Indication: Product used for unknown indication
     Dosage: UNK
     Route: 065

REACTIONS (14)
  - Femur fracture [Unknown]
  - Nephrolithiasis [Unknown]
  - Insomnia [Unknown]
  - Fibromyalgia [Unknown]
  - Osteoarthritis [Unknown]
  - Anxiety [Unknown]
  - Vitamin D decreased [Unknown]
  - Depression [Unknown]
  - Fall [Unknown]
  - Osteoporosis [Unknown]
  - Short stature [Unknown]
  - Arthralgia [Unknown]
  - Bone pain [Unknown]
  - Impaired healing [Unknown]

NARRATIVE: CASE EVENT DATE: 20100101
